FAERS Safety Report 6390271-7 (Version None)
Quarter: 2009Q4

REPORT INFORMATION
  Report Type: 
  Country: None (occurrence: None)
  Receive Date: 20091006
  Receipt Date: 20090926
  Transmission Date: 20100525
  Serious: Yes (Other)
  Sender: FDA-Public Use
  Company Number: US-JNJFOC-20090908387

PATIENT
  Sex: Female
  Weight: 60.33 kg

DRUGS (4)
  1. REMICADE [Suspect]
     Route: 042
     Dates: start: 20081117, end: 20090707
  2. REMICADE [Suspect]
     Route: 042
     Dates: start: 20081117, end: 20090707
  3. REMICADE [Suspect]
     Route: 042
     Dates: start: 20081117, end: 20090707
  4. REMICADE [Suspect]
     Indication: RHEUMATOID ARTHRITIS
     Route: 042
     Dates: start: 20081117, end: 20090707

REACTIONS (1)
  - LUNG NEOPLASM MALIGNANT [None]
